FAERS Safety Report 10190456 (Version 1)
Quarter: 2014Q2

REPORT INFORMATION
  Report Type: Spontaneous
  Country: DE (occurrence: DE)
  Receive Date: 20140522
  Receipt Date: 20140522
  Transmission Date: 20141212
  Serious: Yes (Hospitalization)
  Sender: FDA-Public Use
  Company Number: DE-ABBVIE-14P-062-1238590-00

PATIENT
  Age: 52 Year
  Sex: Female
  Weight: 67 kg

DRUGS (4)
  1. HUMIRA [Suspect]
     Indication: PSORIASIS
     Route: 058
     Dates: start: 20140114, end: 201403
  2. PAROXETIN [Concomitant]
     Indication: PRODUCT USED FOR UNKNOWN INDICATION
     Dates: end: 20140408
  3. VOMEX A [Concomitant]
     Indication: PRODUCT USED FOR UNKNOWN INDICATION
  4. FORMIGRAN [Concomitant]
     Indication: MIGRAINE

REACTIONS (2)
  - Portal vein thrombosis [Unknown]
  - Diverticulum [Unknown]
